FAERS Safety Report 13663939 (Version 1)
Quarter: 2017Q2

REPORT INFORMATION
  Report Type: Spontaneous
  Country: US (occurrence: US)
  Receive Date: 20170619
  Receipt Date: 20170619
  Transmission Date: 20170830
  Serious: Yes (Hospitalization, Other)
  Sender: FDA-Public Use
  Company Number: US-AUROBINDO-AUR-APL-2017-35564

PATIENT

DRUGS (5)
  1. CYCLOPHOSPHAMIDE. [Suspect]
     Active Substance: CYCLOPHOSPHAMIDE
     Indication: PLASMA CELL MYELOMA
     Dosage: 350 MG/M2, EVERY 12 HOURS
     Route: 042
  2. MESNA. [Suspect]
     Active Substance: MESNA
     Indication: PLASMA CELL MYELOMA
     Dosage: 400 MG, DAILY
     Route: 042
  3. VINCRISTINE [Suspect]
     Active Substance: VINCRISTINE
     Indication: PLASMA CELL MYELOMA
     Dosage: 0.4 MG, DAILY
     Route: 042
  4. DEXAMETHASONE. [Suspect]
     Active Substance: DEXAMETHASONE
     Indication: PLASMA CELL MYELOMA
     Dosage: 40 MG, DAILY
     Route: 042
  5. DOXORUBICIN [Suspect]
     Active Substance: DOXORUBICIN
     Indication: PLASMA CELL MYELOMA
     Dosage: 10 MG/M2, DAILY
     Route: 042

REACTIONS (5)
  - Febrile neutropenia [Unknown]
  - Sepsis [Unknown]
  - Pseudomonas infection [Unknown]
  - Renal failure [Unknown]
  - Bronchopulmonary aspergillosis [Unknown]
